FAERS Safety Report 10639879 (Version 1)
Quarter: 2014Q4

REPORT INFORMATION
  Report Type: Spontaneous
  Country: US (occurrence: US)
  Receive Date: 20141209
  Receipt Date: 20141209
  Transmission Date: 20150529
  Serious: Yes (Hospitalization, Other)
  Sender: FDA-Public Use
  Company Number: US-AMGEN-USASP2014094697

PATIENT
  Age: 66 Year
  Sex: Male

DRUGS (1)
  1. ENBREL [Suspect]
     Active Substance: ETANERCEPT
     Indication: RHEUMATOID ARTHRITIS
     Dosage: 50 MG, QWK
     Route: 065
     Dates: start: 20130716

REACTIONS (8)
  - Appendix disorder [Recovered/Resolved]
  - Pain [Unknown]
  - Umbilical hernia [Recovered/Resolved]
  - Staphylococcal infection [Recovered/Resolved]
  - Sleep apnoea syndrome [Unknown]
  - Arthropathy [Recovered/Resolved]
  - Incision site vesicles [Recovered/Resolved]
  - Blister [Unknown]

NARRATIVE: CASE EVENT DATE: 2014
